FAERS Safety Report 14010937 (Version 2)
Quarter: 2018Q2

REPORT INFORMATION
  Report Type: Spontaneous
  Country: US (occurrence: US)
  Receive Date: 20170926
  Receipt Date: 20180404
  Transmission Date: 20180711
  Serious: No
  Sender: FDA-Public Use
  Company Number: US-PFIZER INC-2017413242

PATIENT
  Age: 68 Year
  Sex: Female
  Weight: 97.7 kg

DRUGS (5)
  1. IBRANCE [Suspect]
     Active Substance: PALBOCICLIB
     Indication: BREAST CANCER METASTATIC
     Dosage: 125MG CAPSULE (ONCE A DAY FOR 21 DAYS THEN OFF FOR 7 DAYS) (DAILY FOR 21 DAYS, OFF FOR 7)
     Route: 048
     Dates: start: 2016
  2. XGEVA [Suspect]
     Active Substance: DENOSUMAB
     Indication: BONE DISORDER
     Dosage: INJECTION, NOT SURE OF THE DOSE
     Dates: start: 2016
  3. TUMS [Concomitant]
     Active Substance: CALCIUM CARBONATE
     Dosage: UNK
  4. ASPIRIN. [Concomitant]
     Active Substance: ASPIRIN
     Indication: HEADACHE
     Dosage: TAKES THE USUAL DOSE
  5. FASLODEX [Suspect]
     Active Substance: FULVESTRANT
     Indication: BREAST CANCER METASTATIC
     Dosage: INJECTION, NOT SURE OF THE DOSE
     Dates: start: 2016

REACTIONS (3)
  - Memory impairment [Not Recovered/Not Resolved]
  - Nasopharyngitis [Recovering/Resolving]
  - Laryngitis [Recovering/Resolving]

NARRATIVE: CASE EVENT DATE: 2016
